FAERS Safety Report 16019687 (Version 1)
Quarter: 2019Q1

REPORT INFORMATION
  Report Type: Spontaneous
  Country: US (occurrence: US)
  Receive Date: 20190228
  Receipt Date: 20190228
  Transmission Date: 20190418
  Serious: Yes (Hospitalization)
  Sender: FDA-Public Use
  Company Number: PHHY2019US041396

PATIENT
  Age: 13 Year
  Sex: Female
  Weight: 64.7 kg

DRUGS (1)
  1. LEVETIRACETAM. [Suspect]
     Active Substance: LEVETIRACETAM
     Indication: EPILEPSY
     Dosage: 250 MG, TID
     Route: 048

REACTIONS (7)
  - Headache [Recovered/Resolved]
  - Meningitis aseptic [Recovered/Resolved]
  - Photophobia [Unknown]
  - Confusional state [Unknown]
  - Vomiting [Unknown]
  - Papilloedema [Unknown]
  - Hypertension [Recovered/Resolved]
